FAERS Safety Report 19213363 (Version 3)
Quarter: 2021Q3

REPORT INFORMATION
  Report Type: Spontaneous
  Country: TR (occurrence: TR)
  Receive Date: 20210504
  Receipt Date: 20210802
  Transmission Date: 20211014
  Serious: No
  Sender: FDA-Public Use
  Company Number: TR-ALLERGAN-2116273US

PATIENT
  Sex: Male

DRUGS (1)
  1. OZURDEX [Suspect]
     Active Substance: DEXAMETHASONE
     Indication: DIABETIC RETINAL OEDEMA
     Dosage: 0.7 MG, SINGLE
     Route: 031
     Dates: start: 20210420, end: 20210420

REACTIONS (4)
  - Complication of device insertion [Recovered/Resolved]
  - Product administered at inappropriate site [Unknown]
  - Device delivery system issue [Unknown]
  - Device issue [Unknown]
